FAERS Safety Report 4587134-6 (Version None)
Quarter: 2005Q1

REPORT INFORMATION
  Report Type: 
  Country: None (occurrence: None)
  Receive Date: 20050215
  Receipt Date: 20050207
  Transmission Date: 20050727
  Serious: Yes (Death, Hospitalization)
  Sender: FDA-Public Use
  Company Number: 2002-08-0019

PATIENT
  Age: 67 Year
  Sex: Male

DRUGS (3)
  1. THALOMID [Suspect]
     Indication: MYELODYSPLASTIC SYNDROME
     Dosage: 100 MG, QHS, ORAL
     Route: 048
     Dates: start: 20020603, end: 20020607
  2. ARSENIC TRIOXIDE (ARSENIC TRIOXIDE) (INJECTION) [Suspect]
     Indication: MYELODYSPLASTIC SYNDROME
     Dosage: 0.25 MG/KG, QD X 5D/WK FOR 2 WKS OFF, INTRAVENOUS
     Route: 042
     Dates: start: 20020603, end: 20020607
  3. PYRIDOXINE (PYRIDOXINE) [Concomitant]

REACTIONS (7)
  - BACTERIAL INFECTION [None]
  - CHILLS [None]
  - DISEASE PROGRESSION [None]
  - DYSPNOEA [None]
  - FEBRILE NEUTROPENIA [None]
  - SEPSIS [None]
  - STREPTOCOCCAL INFECTION [None]
